FAERS Safety Report 5322888-2 (Version None)
Quarter: 2007Q2

REPORT INFORMATION
  Report Type: 
  Country: None (occurrence: None)
  Receive Date: 20070221
  Receipt Date: 20060914
  Transmission Date: 20071010
  Serious: Yes (Other)
  Sender: FDA-Public Use
  Company Number: PHEH2006US11119

PATIENT
  Age: 54 Year
  Sex: Male
  Weight: 110.2 kg

DRUGS (3)
  1. DIOVAN [Suspect]
     Indication: HYPERTENSION
     Dosage: 80 MG, QD, ORAL
     Route: 048
     Dates: start: 20060707, end: 20060712
  2. VIAGRA [Concomitant]
  3. SYNTHROID [Concomitant]

REACTIONS (2)
  - ANGIOEDEMA [None]
  - FACE OEDEMA [None]
